FAERS Safety Report 10044084 (Version 2)
Quarter: 2014Q1

REPORT INFORMATION
  Report Type: Spontaneous
  Country: US (occurrence: US)
  Receive Date: 20140328
  Receipt Date: 20140328
  Transmission Date: 20141002
  Serious: No
  Sender: FDA-Public Use
  Company Number: US-MYLANLABS-2013S1026445

PATIENT
  Age: 50 Year
  Sex: Female
  Weight: 72.58 kg

DRUGS (7)
  1. EMSAM (SELEGILINE TRANSDERMAL SYSTEM) [Suspect]
     Indication: DEPRESSION
     Dosage: CHANGED EVERYDAY
     Route: 062
     Dates: start: 20130506, end: 201307
  2. EMSAM (SELEGILINE TRANSDERMAL SYSTEM) [Suspect]
     Indication: DEPRESSION
     Dosage: CHANGED EVERYDAY
     Route: 062
     Dates: start: 201307, end: 201311
  3. LAMOTRIGINE [Concomitant]
     Indication: BIPOLAR DISORDER
     Route: 048
  4. TRILEPTAL [Concomitant]
     Route: 048
  5. KLONOPIN [Concomitant]
     Dosage: 1-2MG
     Route: 048
  6. VISTARIL [Concomitant]
     Dosage: CAN TAKE AT BEDTIME AS NEEDED
     Route: 048
  7. MELATONIN [Concomitant]
     Route: 048

REACTIONS (3)
  - Application site pruritus [Recovered/Resolved]
  - Application site erythema [Recovered/Resolved]
  - Application site rash [Recovered/Resolved]
